FAERS Safety Report 8583937-1 (Version None)
Quarter: 2012Q3

REPORT INFORMATION
  Report Type: 
  Country: None (occurrence: None)
  Receive Date: 20120810
  Receipt Date: 20120803
  Transmission Date: 20120928
  Serious: Yes (Disabling)
  Sender: FDA-Public Use
  Company Number: US-009507513-1208USA001540

PATIENT

DRUGS (1)
  1. PROPECIA [Suspect]

REACTIONS (7)
  - ANXIETY [None]
  - TESTICULAR PAIN [None]
  - DEPRESSION [None]
  - LIBIDO DECREASED [None]
  - SEMEN VOLUME DECREASED [None]
  - ERECTILE DYSFUNCTION [None]
  - COGNITIVE DISORDER [None]
